FAERS Safety Report 16561177 (Version 1)
Quarter: 2019Q3

REPORT INFORMATION
  Report Type: Spontaneous
  Country: US (occurrence: US)
  Receive Date: 20190711
  Receipt Date: 20190711
  Transmission Date: 20191004
  Serious: Yes (Hospitalization)
  Sender: FDA-Public Use
  Company Number: US-CELGENEUS-USA-20190702998

PATIENT
  Age: 68 Year
  Sex: Female
  Weight: 74 kg

DRUGS (20)
  1. OXYCODONE [Concomitant]
     Active Substance: OXYCODONE
     Indication: PAIN
     Dosage: 5 MILLIGRAM
     Route: 065
  2. LORAZEPAM. [Concomitant]
     Active Substance: LORAZEPAM
     Indication: DEPRESSION
     Dosage: 1 MILLIGRAM
     Route: 065
  3. BISACODYL EC [Concomitant]
     Active Substance: BISACODYL
     Indication: MICTURITION URGENCY
     Dosage: 5 MILLIGRAM
     Route: 065
  4. BISACODYL EC [Concomitant]
     Active Substance: BISACODYL
     Indication: GASTROOESOPHAGEAL REFLUX DISEASE
  5. REVLIMID [Suspect]
     Active Substance: LENALIDOMIDE
     Indication: PLASMA CELL MYELOMA
     Dosage: 25 MILLIGRAM
     Route: 048
     Dates: start: 20190612
  6. ESTRADIOL. [Concomitant]
     Active Substance: ESTRADIOL
     Indication: HORMONE THERAPY
     Dosage: .5 MILLIGRAM
     Route: 065
  7. CLONAZEPAM. [Concomitant]
     Active Substance: CLONAZEPAM
     Indication: DEPRESSION
     Dosage: 1 MILLIGRAM
     Route: 065
  8. MIRALAX [Concomitant]
     Active Substance: POLYETHYLENE GLYCOL 3350
     Indication: CONSTIPATION
  9. MIRALAX [Concomitant]
     Active Substance: POLYETHYLENE GLYCOL 3350
     Indication: GASTROOESOPHAGEAL REFLUX DISEASE
  10. BISACODYL EC [Concomitant]
     Active Substance: BISACODYL
     Indication: CONSTIPATION
  11. AMLODIPINE-OLMESARTAN [Concomitant]
     Indication: HYPERTENSION
     Dosage: 5-40 MILLIGRAMS
     Route: 065
  12. OXYBUTYNIN ER [Concomitant]
     Active Substance: OXYBUTYNIN
     Indication: MICTURITION URGENCY
     Dosage: 10 MILLIGRAM
     Route: 065
  13. OXYBUTYNIN ER [Concomitant]
     Active Substance: OXYBUTYNIN
     Indication: GASTROOESOPHAGEAL REFLUX DISEASE
  14. MIRALAX [Concomitant]
     Active Substance: POLYETHYLENE GLYCOL 3350
     Indication: MICTURITION URGENCY
     Route: 065
  15. OMEPRAZOLE. [Concomitant]
     Active Substance: OMEPRAZOLE
     Indication: GASTROOESOPHAGEAL REFLUX DISEASE
  16. DEXAMETHASONE. [Concomitant]
     Active Substance: DEXAMETHASONE
     Indication: PLASMA CELL MYELOMA
     Dosage: 4 MILLIGRAM
     Route: 065
  17. OXYBUTYNIN ER [Concomitant]
     Active Substance: OXYBUTYNIN
     Indication: CONSTIPATION
  18. OMEPRAZOLE. [Concomitant]
     Active Substance: OMEPRAZOLE
     Indication: CONSTIPATION
  19. DESVENLAFAXINE ER [Concomitant]
     Active Substance: DESVENLAFAXINE
     Indication: DEPRESSION
     Dosage: 50 MILLIGRAM
     Route: 065
  20. OMEPRAZOLE. [Concomitant]
     Active Substance: OMEPRAZOLE
     Indication: MICTURITION URGENCY
     Dosage: 20 MILLIGRAM
     Route: 065

REACTIONS (1)
  - Pulmonary embolism [Recovered/Resolved]

NARRATIVE: CASE EVENT DATE: 20190615
